FAERS Safety Report 18577254 (Version 1)
Quarter: 2020Q4

REPORT INFORMATION
  Report Type: Spontaneous
  Country: FR (occurrence: FR)
  Receive Date: 20201204
  Receipt Date: 20201204
  Transmission Date: 20210114
  Serious: Yes (Other)
  Sender: FDA-Public Use
  Company Number: FR-SUN PHARMACEUTICAL INDUSTRIES LTD-2020RR-269604

PATIENT
  Age: 31 Year
  Sex: Female
  Weight: 60 kg

DRUGS (4)
  1. GONAL-F [Suspect]
     Active Substance: FOLLITROPIN
     Indication: IN VITRO FERTILISATION
     Dosage: 112.5 INTERNATIONAL UNIT, DAILY
     Route: 058
     Dates: start: 20191128, end: 20191205
  2. DECAPEPTYL 0,1 MG, POUDRE ET SOLVANT POUR SOLUTION INJECTABLE (S.C.) [Suspect]
     Active Substance: TRIPTORELIN
     Indication: IN VITRO FERTILISATION
     Dosage: IN TOTAL
     Route: 058
     Dates: start: 20191210
  3. PERGOVERIS [Suspect]
     Active Substance: FOLLITROPIN\LUTROPIN ALFA
     Indication: IN VITRO FERTILISATION
     Dosage: 100 INTERNATIONAL UNIT, DAILY
     Route: 058
     Dates: start: 20191206, end: 20191209
  4. FYREMADEL [Suspect]
     Active Substance: GANIRELIX ACETATE
     Indication: IN VITRO FERTILISATION
     Dosage: 1 DOSAGE FORM, DAILY
     Route: 058
     Dates: start: 20191202, end: 20191209

REACTIONS (2)
  - Ovarian hyperstimulation syndrome [Recovered/Resolved]
  - Ascites [Recovered/Resolved]

NARRATIVE: CASE EVENT DATE: 20191218
